FAERS Safety Report 4477080-0 (Version None)
Quarter: 2004Q4

REPORT INFORMATION
  Report Type: 
  Country: None (occurrence: None)
  Receive Date: 20041018
  Receipt Date: 20041006
  Transmission Date: 20050328
  Serious: Yes (Hospitalization)
  Sender: FDA-Public Use
  Company Number: JP-BRISTOL-MYERS SQUIBB COMPANY-12730768

PATIENT
  Age: 58 Year
  Sex: Male

DRUGS (3)
  1. UFT [Suspect]
     Indication: OESOPHAGEAL CARCINOMA
     Dosage: CAPSULES
     Route: 048
     Dates: end: 20030301
  2. CISPLATIN [Suspect]
     Indication: OESOPHAGEAL CARCINOMA
     Route: 042
  3. FLUOROURACIL [Suspect]
     Indication: OESOPHAGEAL CARCINOMA
     Route: 042

REACTIONS (1)
  - MYELODYSPLASTIC SYNDROME [None]
